FAERS Safety Report 9054615 (Version 1)
Quarter: 2013Q1

REPORT INFORMATION
  Report Type: Spontaneous
  Country: GB (occurrence: GB)
  Receive Date: 20130208
  Receipt Date: 20130208
  Transmission Date: 20140127
  Serious: Yes (Other)
  Sender: FDA-Public Use
  Company Number: GB-B.I. PHARMACEUTICALS,INC./RIDGEFIELD-2013-UK-00166UK

PATIENT
  Age: 38 Year
  Sex: Female

DRUGS (2)
  1. VIRAMUNE [Suspect]
     Dosage: 400 MG
     Route: 048
     Dates: start: 20121201, end: 20130115
  2. TRUVADA [Concomitant]

REACTIONS (4)
  - Gastrooesophageal reflux disease [Recovered/Resolved]
  - Abdominal distension [Recovered/Resolved]
  - Product taste abnormal [Recovered/Resolved]
  - Nausea [Recovered/Resolved]
